FAERS Safety Report 5186523-9 (Version None)
Quarter: 2006Q4

REPORT INFORMATION
  Report Type: 
  Country: None (occurrence: None)
  Receive Date: 20061213
  Receipt Date: 20061130
  Transmission Date: 20070319
  Serious: Yes (Death, Hospitalization)
  Sender: FDA-Public Use
  Company Number: SPI200600205

PATIENT
  Age: 64 Year
  Sex: Female

DRUGS (2)
  1. AMITIZA [Suspect]
     Indication: CONSTIPATION
     Dosage: 24 MCG, BID, ORAL
     Route: 048
     Dates: start: 20061001, end: 20061001
  2. MIRALAX [Concomitant]

REACTIONS (6)
  - ASCITES [None]
  - COLON CANCER METASTATIC [None]
  - DRUG INEFFECTIVE [None]
  - MALAISE [None]
  - METASTASES TO ABDOMINAL CAVITY [None]
  - METASTASES TO LIVER [None]
